FAERS Safety Report 16287407 (Version 2)
Quarter: 2019Q2

REPORT INFORMATION
  Report Type: Spontaneous
  Country: IT (occurrence: IT)
  Receive Date: 20190508
  Receipt Date: 20190528
  Transmission Date: 20190711
  Serious: Yes (Hospitalization)
  Sender: FDA-Public Use
  Company Number: IT-OTSUKA-2019_016985

PATIENT
  Age: 19 Year
  Sex: Female

DRUGS (5)
  1. ANSIOLIN [Suspect]
     Active Substance: DIAZEPAM
     Indication: SUICIDE ATTEMPT
     Dosage: 25 MG, UNK
     Route: 048
     Dates: start: 20190212, end: 20190212
  2. PREGABALIN. [Suspect]
     Active Substance: PREGABALIN
     Indication: SUICIDE ATTEMPT
     Dosage: 300 MG, UNK
     Route: 065
     Dates: start: 20190212, end: 20190212
  3. MINIAS [Suspect]
     Active Substance: LORMETAZEPAM
     Indication: SUICIDE ATTEMPT
     Dosage: 40 GTT, UNK
     Route: 048
     Dates: start: 20190212, end: 20190212
  4. ABILIFY [Suspect]
     Active Substance: ARIPIPRAZOLE
     Indication: SEXUAL ABUSE
     Dosage: 10 MG, UNK
     Route: 048
     Dates: start: 20190212, end: 20190212
  5. XANAX [Suspect]
     Active Substance: ALPRAZOLAM
     Indication: SUICIDE ATTEMPT
     Dosage: 5 MG, UNK
     Route: 048
     Dates: start: 20190212, end: 20190212

REACTIONS (3)
  - Sopor [Unknown]
  - Product use in unapproved indication [Unknown]
  - Cognitive disorder [Unknown]

NARRATIVE: CASE EVENT DATE: 20190212
